FAERS Safety Report 7958884-6 (Version None)
Quarter: 2011Q4

REPORT INFORMATION
  Report Type: 
  Country: None (occurrence: None)
  Receive Date: 20111206
  Receipt Date: 20111128
  Transmission Date: 20120403
  Serious: Yes (Hospitalization)
  Sender: FDA-Public Use
  Company Number: US-B.I. PHARMACEUTICALS,INC./RIDGEFIELD-2011-BP-26922BP

PATIENT
  Sex: Male

DRUGS (3)
  1. ASPIRIN [Concomitant]
  2. PRADAXA [Suspect]
     Route: 048
  3. FLUID PILL [Concomitant]

REACTIONS (1)
  - THROMBOSIS [None]
